FAERS Safety Report 8081597-X (Version None)
Quarter: 2012Q1

REPORT INFORMATION
  Report Type: 
  Country: None (occurrence: None)
  Receive Date: 20120130
  Receipt Date: 20120121
  Transmission Date: 20120608
  Serious: Yes (Hospitalization, Other)
  Sender: FDA-Public Use
  Company Number: CHPA2012US001807

PATIENT
  Age: 77 Year
  Sex: Female

DRUGS (1)
  1. EXCEDRIN EXTRA STRENGTH TABLETS [Suspect]
     Indication: SOMNOLENCE
     Dosage: 2 TO 3 DF, QD
     Route: 048
     Dates: end: 20120121

REACTIONS (4)
  - OFF LABEL USE [None]
  - INCORRECT DRUG ADMINISTRATION DURATION [None]
  - BREAST CANCER [None]
  - CEREBROVASCULAR ACCIDENT [None]
